FAERS Safety Report 6046428-8 (Version None)
Quarter: 2009Q1

REPORT INFORMATION
  Report Type: 
  Country: None (occurrence: None)
  Receive Date: 20090121
  Receipt Date: 20090121
  Transmission Date: 20090719
  Serious: Yes (Other)
  Sender: FDA-Public Use
  Company Number: None

PATIENT
  Age: 39 Year
  Sex: Male
  Weight: 72.5755 kg

DRUGS (2)
  1. CREST PRO-HEALTH NIGHT ORAL RINS [Suspect]
     Indication: GINGIVAL DISORDER
     Dosage: 10ML ONCE DAILY PO
  2. CREST PRO-HEALTH NIGHT ORAL RINS [Suspect]
     Indication: PROPHYLAXIS
     Dosage: 10ML ONCE DAILY PO

REACTIONS (1)
  - TOOTH DISCOLOURATION [None]
